FAERS Safety Report 7769488-2 (Version None)
Quarter: 2011Q3

REPORT INFORMATION
  Report Type: 
  Country: None (occurrence: None)
  Receive Date: 20110922
  Receipt Date: 20110121
  Transmission Date: 20111222
  Serious: No
  Sender: FDA-Public Use
  Company Number: US-ASTRAZENECA-2011SE00623

PATIENT
  Age: 49 Year
  Sex: Female

DRUGS (1)
  1. SEROQUEL [Suspect]
     Route: 048

REACTIONS (5)
  - SINUS DISORDER [None]
  - COUGH [None]
  - DRUG DOSE OMISSION [None]
  - LOWER RESPIRATORY TRACT INFECTION [None]
  - NASAL CONGESTION [None]
